FAERS Safety Report 16081714 (Version 4)
Quarter: 2022Q2

REPORT INFORMATION
  Report Type: Spontaneous
  Country: GB (occurrence: GB)
  Receive Date: 20190316
  Receipt Date: 20220601
  Transmission Date: 20220721
  Serious: Yes (Death)
  Sender: FDA-Public Use
  Company Number: PHHY2019GB058401

PATIENT
  Age: 27 Year
  Sex: Male

DRUGS (6)
  1. LEUCOVORIN CALCIUM [Suspect]
     Active Substance: LEUCOVORIN CALCIUM
     Indication: Monoclonal B-cell lymphocytosis
     Dosage: UNK
     Route: 065
  2. LEUCOVORIN CALCIUM [Suspect]
     Active Substance: LEUCOVORIN CALCIUM
     Indication: Epstein-Barr virus associated lymphoproliferative disorder
  3. METHOTREXATE SODIUM [Suspect]
     Active Substance: METHOTREXATE SODIUM
     Indication: Epstein-Barr virus associated lymphoproliferative disorder
     Dosage: UNK (3 G PER SQARE METER OF BODY-SURFACE AREA)
     Route: 065
  4. METHOTREXATE SODIUM [Suspect]
     Active Substance: METHOTREXATE SODIUM
     Indication: Monoclonal B-cell lymphocytosis
  5. ACYCLOVIR [Suspect]
     Active Substance: ACYCLOVIR
     Indication: Monoclonal B-cell lymphocytosis
     Dosage: 12.5 MG/KG, TID
     Route: 065
  6. ACYCLOVIR [Suspect]
     Active Substance: ACYCLOVIR
     Indication: Epstein-Barr virus associated lymphoproliferative disorder

REACTIONS (2)
  - Renal failure [Fatal]
  - Hepatic failure [Fatal]
